FAERS Safety Report 12186937 (Version 1)
Quarter: 2016Q1

REPORT INFORMATION
  Report Type: Spontaneous
  Country: US (occurrence: None)
  Receive Date: 20160316
  Receipt Date: 20160316
  Transmission Date: 20160526
  Serious: Yes (Hospitalization)
  Sender: FDA-Public Use
  Company Number: None

PATIENT
  Age: 67 Year
  Sex: Male
  Weight: 63.6 kg

DRUGS (2)
  1. FENTANYL. [Concomitant]
     Active Substance: FENTANYL
     Indication: CORONARY ARTERIAL STENT INSERTION
     Route: 042
     Dates: start: 20151208, end: 20151208
  2. MIDAZOLAM [Suspect]
     Active Substance: MIDAZOLAM\MIDAZOLAM HYDROCHLORIDE
     Indication: CORONARY ARTERIAL STENT INSERTION
     Route: 042
     Dates: start: 20151208, end: 20151208

REACTIONS (1)
  - Delirium [None]

NARRATIVE: CASE EVENT DATE: 20151208
